FAERS Safety Report 10648174 (Version 2)
Quarter: 2014Q4

REPORT INFORMATION
  Report Type: Spontaneous
  Country: JP (occurrence: JP)
  Receive Date: 20141212
  Receipt Date: 20141212
  Transmission Date: 20150529
  Serious: Yes (Hospitalization)
  Sender: FDA-Public Use
  Company Number: JP-BRISTOL-MYERS SQUIBB COMPANY-21150982

PATIENT
  Age: 55 Year
  Sex: Female
  Weight: 40 kg

DRUGS (14)
  1. TRESIBA [Suspect]
     Active Substance: INSULIN DEGLUDEC
     Dosage: 16 IU, ONE TIME DOSE
     Route: 058
     Dates: end: 20140616
  2. TRESIBA [Suspect]
     Active Substance: INSULIN DEGLUDEC
     Dosage: 8 IU, ONE TIME DOSE
     Route: 058
     Dates: start: 20140708, end: 20140722
  3. JANUVIA [Suspect]
     Active Substance: SITAGLIPTIN PHOSPHATE
     Indication: TYPE 2 DIABETES MELLITUS
     Dosage: 50 MG, ONE TIME DOSE
     Route: 048
     Dates: start: 20140318, end: 20140731
  4. TRESIBA [Suspect]
     Active Substance: INSULIN DEGLUDEC
     Dosage: 6 IU, ONE TIME DOSE
     Route: 058
     Dates: start: 20140625, end: 20140627
  5. TRESIBA [Suspect]
     Active Substance: INSULIN DEGLUDEC
     Dosage: 14 IU, ONE TIME DOSE
     Route: 058
     Dates: start: 20140630, end: 20140703
  6. TRESIBA [Suspect]
     Active Substance: INSULIN DEGLUDEC
     Dosage: 12 IU, ONE TIME DOSE
     Route: 058
     Dates: start: 20140704, end: 20140707
  7. CRESTOR [Concomitant]
     Active Substance: ROSUVASTATIN CALCIUM
     Indication: HYPERCHOLESTEROLAEMIA
  8. FORXIGA [Suspect]
     Active Substance: DAPAGLIFLOZIN
     Indication: TYPE 2 DIABETES MELLITUS
     Dosage: 5 MG, ONE TIME DOSE
     Route: 048
     Dates: start: 20140610, end: 20140731
  9. METGLUCO [Suspect]
     Active Substance: METFORMIN HYDROCHLORIDE
     Indication: TYPE 2 DIABETES MELLITUS
     Dosage: 750 MG, TID
     Route: 048
     Dates: start: 20111207, end: 20140731
  10. SEIBULE [Suspect]
     Active Substance: MIGLITOL
     Indication: TYPE 2 DIABETES MELLITUS
     Dosage: 50 MG, TID
     Route: 048
     Dates: start: 20110803, end: 20140731
  11. TRESIBA [Suspect]
     Active Substance: INSULIN DEGLUDEC
     Indication: TYPE 2 DIABETES MELLITUS
     Dosage: 20 IU, ONE TIME DOSE
     Route: 058
     Dates: start: 20130422, end: 20140722
  12. TRESIBA [Suspect]
     Active Substance: INSULIN DEGLUDEC
     Dosage: 8 IU, ONE TIME DOSE
     Route: 058
     Dates: start: 20140617, end: 20140720
  13. TRESIBA [Suspect]
     Active Substance: INSULIN DEGLUDEC
     Dosage: 12 IU, ONE TIME DOSE
     Route: 058
     Dates: start: 20140621, end: 20140624
  14. TRESIBA [Suspect]
     Active Substance: INSULIN DEGLUDEC
     Dosage: 10 IU, ONE TIME DOSE
     Route: 058
     Dates: start: 20140628, end: 20140629

REACTIONS (2)
  - Hypoglycaemia [Recovering/Resolving]
  - Diabetic ketoacidosis [Unknown]

NARRATIVE: CASE EVENT DATE: 20140619
